FAERS Safety Report 11525875 (Version 1)
Quarter: 2015Q3

REPORT INFORMATION
  Report Type: Spontaneous
  Country: US (occurrence: None)
  Receive Date: 20150918
  Receipt Date: 20150918
  Transmission Date: 20151125
  Serious: Yes (Life-Threatening, Hospitalization, Other)
  Sender: FDA-Public Use
  Company Number: US-MDT-ADR-2015-01818

PATIENT
  Sex: Male

DRUGS (2)
  1. BACLOFEN INTRATHECAL  - 2000 MCG/ML [Suspect]
     Active Substance: BACLOFEN
     Dosage: 800 MCG/DAY
  2. COMPOUNDED BACLOFEN INTRATHECAL - 4000 MCG/ML [Suspect]
     Active Substance: BACLOFEN
     Indication: DYSTONIA
     Dosage: 800 MCG/DAY

REACTIONS (18)
  - Fall [None]
  - Migraine [None]
  - Drug withdrawal syndrome [None]
  - Overdose [None]
  - Diplopia [None]
  - Hypotonia [None]
  - Dystonia [None]
  - Muscle spasms [None]
  - Respiratory rate decreased [None]
  - Dysarthria [None]
  - Dysuria [None]
  - Respiratory arrest [None]
  - Coma [None]
  - Muscle spasticity [None]
  - Confusional state [None]
  - Headache [None]
  - Lethargy [None]
  - Gait disturbance [None]
